FAERS Safety Report 16218524 (Version 1)
Quarter: 2019Q2

REPORT INFORMATION
  Report Type: Spontaneous
  Country: US (occurrence: US)
  Receive Date: 20190419
  Receipt Date: 20190419
  Transmission Date: 20190711
  Serious: No
  Sender: FDA-Public Use
  Company Number: US-TEVA-2019-US-1031402

PATIENT
  Sex: Female

DRUGS (1)
  1. SULFAMETHOXAZOLE AND TRIMETHOPRIM INJECTION [Suspect]
     Active Substance: SULFAMETHOXAZOLE\TRIMETHOPRIM
     Dosage: DOSE STRENGTH: SULFAMETHOXAZOLE 80 MG/TRIMETHOPRIM 16 MG/ML
     Dates: start: 20190315

REACTIONS (5)
  - Nausea [Unknown]
  - Gastrointestinal disorder [Unknown]
  - Hyperchlorhydria [Unknown]
  - Drug intolerance [Unknown]
  - Malaise [Unknown]

NARRATIVE: CASE EVENT DATE: 20190315
